FAERS Safety Report 7352833-X (Version None)
Quarter: 2011Q1

REPORT INFORMATION
  Report Type: 
  Country: None (occurrence: None)
  Receive Date: 20110315
  Receipt Date: 20110310
  Transmission Date: 20110831
  Serious: Yes (Hospitalization)
  Sender: FDA-Public Use
  Company Number: MA-ROCHE-755181

PATIENT
  Sex: Female
  Weight: 49 kg

DRUGS (7)
  1. TOCILIZUMAB [Suspect]
     Indication: RHEUMATOID ARTHRITIS
     Route: 042
     Dates: start: 20100612
  2. TOCILIZUMAB [Suspect]
     Route: 042
     Dates: start: 20101021
  3. INDOMETHACIN [Concomitant]
     Dosage: IF PAIN
     Route: 048
     Dates: start: 19980101
  4. CORTANCYL [Concomitant]
     Route: 048
     Dates: start: 19980101
  5. TOCILIZUMAB [Suspect]
     Route: 042
     Dates: start: 20101223
  6. TOCILIZUMAB [Suspect]
     Route: 042
     Dates: start: 20100924
  7. TOCILIZUMAB [Suspect]
     Route: 042
     Dates: start: 20101122

REACTIONS (2)
  - EPISTAXIS [None]
  - HYPERTENSION [None]
